FAERS Safety Report 24799389 (Version 1)
Quarter: 2025Q1

REPORT INFORMATION
  Report Type: Spontaneous
  Country: NL (occurrence: NL)
  Receive Date: 20250102
  Receipt Date: 20250102
  Transmission Date: 20250408
  Serious: Yes (Hospitalization)
  Sender: ACCORD
  Company Number: None

PATIENT
  Age: 69 Year
  Sex: Male
  Weight: 64 kg

DRUGS (8)
  1. AZACITIDINE [Suspect]
     Active Substance: AZACITIDINE
     Indication: Chronic myeloid leukaemia
     Dosage: 1DD 75MG/M2
     Dates: start: 20240207, end: 20240208
  2. PANTOPRAZOLE [Concomitant]
     Active Substance: PANTOPRAZOLE
  3. OXYCODONE HYDROCHLORIDE [Concomitant]
     Active Substance: OXYCODONE HYDROCHLORIDE
  4. FENTANYL [Concomitant]
     Active Substance: FENTANYL
  5. OXAZEPAM [Concomitant]
     Active Substance: OXAZEPAM
  6. ACETAMINOPHEN [Concomitant]
     Active Substance: ACETAMINOPHEN
  7. MEROPENEM [Concomitant]
     Active Substance: MEROPENEM
  8. FENTANYL [Concomitant]
     Active Substance: FENTANYL

REACTIONS (4)
  - Epistaxis [Recovered/Resolved]
  - Herpes simplex [Unknown]
  - Pancytopenia [Unknown]
  - Haematochezia [Recovered/Resolved]
